FAERS Safety Report 6732937-2 (Version None)
Quarter: 2010Q2

REPORT INFORMATION
  Report Type: 
  Country: None (occurrence: None)
  Receive Date: 20100517
  Receipt Date: 20100503
  Transmission Date: 20101027
  Serious: Yes (Death, Hospitalization)
  Sender: FDA-Public Use
  Company Number: A-NJ2010-35540

PATIENT
  Age: 73 Year
  Sex: Male

DRUGS (3)
  1. TRACLEER [Suspect]
     Indication: PULMONARY ARTERIAL HYPERTENSION
     Dosage: ORAL
     Route: 048
     Dates: start: 20071207
  2. REVATIO [Suspect]
  3. COUMADIN [Concomitant]

REACTIONS (3)
  - METASTATIC MALIGNANT MELANOMA [None]
  - PULMONARY ARTERIAL HYPERTENSION [None]
  - PULMONARY EMBOLISM [None]
